FAERS Safety Report 17373686 (Version 1)
Quarter: 2020Q1

REPORT INFORMATION
  Report Type: Spontaneous
  Country: US (occurrence: US)
  Receive Date: 20200204
  Receipt Date: 20200204
  Transmission Date: 20200409
  Serious: No
  Sender: FDA-Public Use
  Company Number: None

PATIENT
  Age: 54 Year
  Sex: Female
  Weight: 90 kg

DRUGS (4)
  1. LEVOTHYROXINE 100 MCG [Concomitant]
     Active Substance: LEVOTHYROXINE
  2. TOPIRAMATE 125MG [Concomitant]
  3. CYCLOBEZEPRINE 5MG [Concomitant]
  4. AIMOVIG [Suspect]
     Active Substance: ERENUMAB-AOOE
     Indication: MIGRAINE
     Dosage: ?          OTHER ROUTE:ONCE A MONTH INJECTION?
     Dates: start: 20200129, end: 20200129

REACTIONS (16)
  - Hyperhidrosis [None]
  - Piloerection [None]
  - Neck pain [None]
  - Feeling of body temperature change [None]
  - Musculoskeletal pain [None]
  - Muscle spasms [None]
  - Fibromyalgia [None]
  - Arthralgia [None]
  - Myalgia [None]
  - Anxiety [None]
  - Insomnia [None]
  - Musculoskeletal stiffness [None]
  - Sleep deficit [None]
  - Headache [None]
  - Feeling abnormal [None]
  - Gastrointestinal pain [None]

NARRATIVE: CASE EVENT DATE: 20200129
